FAERS Safety Report 6672801-0 (Version None)
Quarter: 2010Q2

REPORT INFORMATION
  Report Type: 
  Country: None (occurrence: None)
  Receive Date: 20100408
  Receipt Date: 20100331
  Transmission Date: 20101027
  Serious: Yes (Death)
  Sender: FDA-Public Use
  Company Number: US-GILEAD-2009-0026233

PATIENT
  Sex: Female

DRUGS (3)
  1. LETAIRIS [Suspect]
     Indication: PULMONARY ARTERIAL HYPERTENSION
     Route: 048
     Dates: start: 20080716, end: 20091218
  2. THEOPHYLLINE-SR [Concomitant]
  3. PREDNISONE TAB [Concomitant]

REACTIONS (2)
  - MYOCARDIAL INFARCTION [None]
  - RESPIRATORY ARREST [None]
